FAERS Safety Report 6418174-X (Version None)
Quarter: 2009Q4

REPORT INFORMATION
  Report Type: 
  Country: None (occurrence: None)
  Receive Date: 20091028
  Receipt Date: 20091015
  Transmission Date: 20100525
  Serious: Yes (Hospitalization)
  Sender: FDA-Public Use
  Company Number: TR-ELI_LILLY_AND_COMPANY-TR200910006617

PATIENT
  Sex: Female

DRUGS (2)
  1. HUMULIN R [Suspect]
     Indication: GESTATIONAL DIABETES
     Dosage: 8 U, 4/D
     Route: 058
     Dates: start: 20081201, end: 20090313
  2. HUMULIN N [Suspect]
     Indication: GESTATIONAL DIABETES
     Dosage: 8 U, DAILY (1/D)
     Route: 058
     Dates: start: 20081201, end: 20090313

REACTIONS (3)
  - BLOOD GLUCOSE INCREASED [None]
  - DRUG EXPOSURE DURING PREGNANCY [None]
  - PRE-ECLAMPSIA [None]
